FAERS Safety Report 12628236 (Version 1)
Quarter: 2016Q3

REPORT INFORMATION
  Report Type: Spontaneous
  Country: US (occurrence: None)
  Receive Date: 20160805
  Receipt Date: 20160805
  Transmission Date: 20161109
  Serious: Yes (Death, Hospitalization)
  Sender: FDA-Public Use
  Company Number: None

PATIENT
  Age: 68 Year
  Sex: Female
  Weight: 83.46 kg

DRUGS (19)
  1. ATIVAN [Concomitant]
     Active Substance: LORAZEPAM
  2. CALCIUM CARBONATE. [Concomitant]
     Active Substance: CALCIUM CARBONATE
  3. ZOFRAN [Concomitant]
     Active Substance: ONDANSETRON HYDROCHLORIDE
  4. MAGNESIUM OXIDE. [Concomitant]
     Active Substance: MAGNESIUM OXIDE
  5. SYNTHROID [Concomitant]
     Active Substance: LEVOTHYROXINE SODIUM
  6. QUNIAPRIL [Concomitant]
  7. PROTONIX [Concomitant]
     Active Substance: PANTOPRAZOLE SODIUM
  8. CARAFATE [Concomitant]
     Active Substance: SUCRALFATE
  9. NEURONTIN [Concomitant]
     Active Substance: GABAPENTIN
  10. INSULIN PUMP [Concomitant]
     Active Substance: INSULIN NOS
  11. VITAMIN D [Concomitant]
     Active Substance: CHOLECALCIFEROL
  12. IMODIUM [Concomitant]
     Active Substance: LOPERAMIDE HYDROCHLORIDE
  13. MARINOL [Concomitant]
     Active Substance: DRONABINOL
  14. CARBOPLATIN. [Suspect]
     Active Substance: CARBOPLATIN
     Indication: MALIGNANT PERITONEAL NEOPLASM
     Dosage: 395 MG Q 28 DAYS IV
     Route: 042
     Dates: start: 20160210, end: 20160628
  15. HYDROCORTISONE CREAM [Concomitant]
     Active Substance: HYDROCORTISONE
  16. DOXIL [Suspect]
     Active Substance: DOXORUBICIN HYDROCHLORIDE
     Indication: MALIGNANT PERITONEAL NEOPLASM
     Dosage: 61 MG Q 28 DAYS IV
     Route: 042
     Dates: start: 20160210, end: 20160628
  17. EVEROLIMUS [Concomitant]
     Active Substance: EVEROLIMUS
  18. COMPAZINE [Concomitant]
     Active Substance: PROCHLORPERAZINE MALEATE
  19. NEXIUM [Concomitant]
     Active Substance: ESOMEPRAZOLE MAGNESIUM

REACTIONS (11)
  - Dizziness [None]
  - Acute kidney injury [None]
  - Loss of consciousness [None]
  - Peritoneal carcinoma metastatic [None]
  - Malignant neoplasm progression [None]
  - Unresponsive to stimuli [None]
  - Hypoglycaemia [None]
  - Septic shock [None]
  - Vomiting [None]
  - Orthostatic hypotension [None]
  - Lethargy [None]

NARRATIVE: CASE EVENT DATE: 20160709
